FAERS Safety Report 10481884 (Version 10)
Quarter: 2018Q3

REPORT INFORMATION
  Report Type: Spontaneous
  Country: US (occurrence: US)
  Receive Date: 20140929
  Receipt Date: 20180719
  Transmission Date: 20181010
  Serious: Yes (Life-Threatening, Other)
  Sender: FDA-Public Use
  Company Number: US-ELI_LILLY_AND_COMPANY-US201012000674

PATIENT
  Sex: Male

DRUGS (6)
  1. METFORMIN [Concomitant]
     Active Substance: METFORMIN HYDROCHLORIDE
     Indication: PRODUCT USED FOR UNKNOWN INDICATION
     Route: 065
  2. ZYPREXA [Suspect]
     Active Substance: OLANZAPINE
     Indication: PSYCHOTIC DISORDER
     Dosage: 2.5 MG, DAILY
     Route: 048
     Dates: start: 20080918, end: 201201
  3. ZYPREXA [Suspect]
     Active Substance: OLANZAPINE
     Indication: BIPOLAR I DISORDER
  4. ZYPREXA [Suspect]
     Active Substance: OLANZAPINE
     Indication: SCHIZOAFFECTIVE DISORDER
     Dosage: 5MG, DAILY
     Route: 048
     Dates: start: 1996, end: 20080917
  5. ZYPREXA [Suspect]
     Active Substance: OLANZAPINE
     Indication: PARKINSON^S DISEASE
  6. STELAZINE [Concomitant]
     Active Substance: TRIFLUOPERAZINE HYDROCHLORIDE
     Indication: PRODUCT USED FOR UNKNOWN INDICATION
     Route: 065

REACTIONS (24)
  - Dysphagia [Unknown]
  - Dyslogia [Unknown]
  - Thinking abnormal [Unknown]
  - Balance disorder [Not Recovered/Not Resolved]
  - Diarrhoea [Unknown]
  - Visual impairment [Unknown]
  - Balanoposthitis [Unknown]
  - Road traffic accident [Unknown]
  - Stress [Unknown]
  - Tinnitus [Not Recovered/Not Resolved]
  - Deafness [Not Recovered/Not Resolved]
  - Amnesia [Not Recovered/Not Resolved]
  - Quality of life decreased [Not Recovered/Not Resolved]
  - Intelligence test abnormal [Not Recovered/Not Resolved]
  - Peyronie^s disease [Unknown]
  - Type 2 diabetes mellitus [Not Recovered/Not Resolved]
  - Dyslexia [Unknown]
  - Irritability [Unknown]
  - Ear disorder [Not Recovered/Not Resolved]
  - Insomnia [Unknown]
  - Dizziness [Not Recovered/Not Resolved]
  - Confusional state [Not Recovered/Not Resolved]
  - Delirium [Not Recovered/Not Resolved]
  - Erectile dysfunction [Unknown]
